FAERS Safety Report 13155824 (Version 1)
Quarter: 2017Q1

REPORT INFORMATION
  Report Type: Spontaneous
  Country: US (occurrence: US)
  Receive Date: 20170126
  Receipt Date: 20170126
  Transmission Date: 20170428
  Serious: Yes (Other)
  Sender: FDA-Public Use
  Company Number: US-ROCHE-672687

PATIENT
  Age: 55 Year
  Sex: Female
  Weight: 102.1 kg

DRUGS (5)
  1. VALIUM [Suspect]
     Active Substance: DIAZEPAM
     Indication: ANXIETY
     Dosage: TOOK 30 TABLETS AT ONCE (OVERDOSE)
     Route: 048
     Dates: start: 200903, end: 200903
  2. VALIUM [Suspect]
     Active Substance: DIAZEPAM
     Dosage: TOOK FOR 6-8 MONTHS
     Route: 048
  3. AMBIEN [Concomitant]
     Active Substance: ZOLPIDEM TARTRATE
     Route: 065
  4. TETRAZEPAM [Suspect]
     Active Substance: TETRAZEPAM
     Indication: ANXIETY
     Dosage: TOOK AROUND 30 TABLETS (OVERDOSE)
     Route: 048
  5. TETRAZEPAM [Suspect]
     Active Substance: TETRAZEPAM
     Dosage: TOOK FOR YEARS; OTHER INDICATION: SLEEPING DISORDER
     Route: 048

REACTIONS (3)
  - Weight decreased [Not Recovered/Not Resolved]
  - Somnolence [Recovering/Resolving]
  - Overdose [Unknown]

NARRATIVE: CASE EVENT DATE: 200808
